FAERS Safety Report 6380771-8 (Version None)
Quarter: 2009Q3

REPORT INFORMATION
  Report Type: 
  Country: None (occurrence: None)
  Receive Date: 20090924
  Receipt Date: 20090908
  Transmission Date: 20100115
  Serious: Yes (Hospitalization)
  Sender: FDA-Public Use
  Company Number: 8052101

PATIENT
  Age: 45 Year
  Sex: Male

DRUGS (4)
  1. PREDNISOLONE [Suspect]
     Indication: AFRICAN TRYPANOSOMIASIS
     Dosage: 50 MG
  2. SURAMIN [Suspect]
     Indication: AFRICAN TRYPANOSOMIASIS
     Dosage: 0.5 G
  3. SURAMIN [Suspect]
     Indication: AFRICAN TRYPANOSOMIASIS
     Dosage: 1 G
  4. MELARSOPROL [Suspect]
     Indication: AFRICAN TRYPANOSOMIASIS

REACTIONS (2)
  - BRUCELLOSIS [None]
  - NERVOUS SYSTEM DISORDER [None]
